FAERS Safety Report 14279457 (Version 1)
Quarter: 2017Q4

REPORT INFORMATION
  Report Type: Spontaneous
  Country: US (occurrence: US)
  Receive Date: 20171213
  Receipt Date: 20171213
  Transmission Date: 20180321
  Serious: Yes (Life-Threatening, Hospitalization, Other)
  Sender: FDA-Public Use
  Company Number: US-SUN PHARMACEUTICAL INDUSTRIES LTD-2017US-156508

PATIENT
  Age: 42 Year
  Sex: Male

DRUGS (1)
  1. DEXAMETHASONE. [Suspect]
     Active Substance: DEXAMETHASONE
     Indication: ASTHMA
     Dosage: UNK
     Route: 048

REACTIONS (13)
  - Strongyloidiasis [Recovering/Resolving]
  - Superinfection [Recovering/Resolving]
  - Respiratory failure [Recovering/Resolving]
  - Rash erythematous [Recovering/Resolving]
  - Skin lesion [Recovering/Resolving]
  - Rash maculo-papular [Recovering/Resolving]
  - Pulmonary alveolar haemorrhage [Recovering/Resolving]
  - Hypokalaemia [Unknown]
  - Rash pustular [Recovering/Resolving]
  - White blood cell count increased [Unknown]
  - Colitis [Recovered/Resolved]
  - Hyponatraemia [Unknown]
  - Hypoalbuminaemia [Unknown]
